FAERS Safety Report 14912386 (Version 1)
Quarter: 2018Q2

REPORT INFORMATION
  Report Type: Spontaneous
  Country: US (occurrence: US)
  Receive Date: 20180501
  Receipt Date: 20180501
  Transmission Date: 20180711
  Serious: No
  Sender: FDA-Public Use
  Company Number: None

PATIENT
  Age: 29 Year
  Sex: Female
  Weight: 56.7 kg

DRUGS (6)
  1. MIRENA [Suspect]
     Active Substance: LEVONORGESTREL
  2. PROZAC [Concomitant]
     Active Substance: FLUOXETINE HYDROCHLORIDE
  3. EPIDUO [Concomitant]
     Active Substance: ADAPALENE\BENZOYL PEROXIDE
  4. DAILY MULTIVITAMIN [Concomitant]
     Active Substance: VITAMINS
  5. XANAX [Concomitant]
     Active Substance: ALPRAZOLAM
  6. ACNE ANTIBIOTIC [Concomitant]

REACTIONS (2)
  - Acne cystic [None]
  - Generalised anxiety disorder [None]

NARRATIVE: CASE EVENT DATE: 20130701
